FAERS Safety Report 4550737-9 (Version None)
Quarter: 2004Q4

REPORT INFORMATION
  Report Type: 
  Country: None (occurrence: None)
  Receive Date: 20041217
  Receipt Date: 20040922
  Transmission Date: 20050328
  Serious: No
  Sender: FDA-Public Use
  Company Number: 2004-BP-08610BP

PATIENT
  Age: 42 Year
  Sex: Female

DRUGS (11)
  1. SPIRIVA [Suspect]
     Indication: CHRONIC OBSTRUCTIVE AIRWAYS DISEASE
     Dosage: 18 MCG (18 MCG) IH
     Route: 055
     Dates: start: 20040701
  2. DIGOXIN [Concomitant]
  3. ISONIAZID [Concomitant]
  4. VITAMIN B6 [Concomitant]
  5. ACETYLSALICYLIC ACID SRT [Concomitant]
  6. PREVACID [Concomitant]
  7. B6 SUPPLEMENT [Concomitant]
  8. ZOCOR [Concomitant]
  9. MIACALCIN [Concomitant]
  10. PROTAMATINE [Concomitant]
  11. SPIRIVA [Suspect]

REACTIONS (1)
  - PHARYNGOLARYNGEAL PAIN [None]
